FAERS Safety Report 8993399 (Version 1)
Quarter: 2013Q1

REPORT INFORMATION
  Report Type: Spontaneous
  Country: US (occurrence: US)
  Receive Date: 20130102
  Receipt Date: 20130102
  Transmission Date: 20140127
  Serious: Yes (Other)
  Sender: FDA-Public Use
  Company Number: CHPA2012US025724

PATIENT
  Age: 62 Year
  Sex: Female

DRUGS (2)
  1. NUPERCAINAL HEMORRHOIDAL/ANES OINTMENT [Suspect]
     Indication: HAEMORRHOIDS
     Dosage: A LITTLE BIT OR MORE, AT LEAST ONCE EACH DAY
     Route: 061
     Dates: start: 20050710
  2. METAMUCIL [Concomitant]
     Dosage: UNK, UNK

REACTIONS (3)
  - Osteopenia [Recovered/Resolved]
  - Gastrooesophageal reflux disease [Not Recovered/Not Resolved]
  - Incorrect drug administration duration [Unknown]
